FAERS Safety Report 21151107 (Version 1)
Quarter: 2022Q3

REPORT INFORMATION
  Report Type: Report from Study
  Country: BR (occurrence: BR)
  Receive Date: 20220730
  Receipt Date: 20220730
  Transmission Date: 20221026
  Serious: Yes (Hospitalization)
  Sender: FDA-Public Use
  Company Number: BR-AstraZeneca-2022A264759

PATIENT
  Sex: Male
  Weight: 7.1 kg

DRUGS (2)
  1. SYNAGIS [Suspect]
     Active Substance: PALIVIZUMAB
     Indication: Respiratory syncytial virus infection
     Dosage: 95MG/ML MONTHLY
     Route: 030
     Dates: start: 20220316, end: 2022
  2. SYNAGIS [Suspect]
     Active Substance: PALIVIZUMAB
     Indication: Respiratory syncytial virus infection
     Route: 030
     Dates: start: 20220626, end: 2022

REACTIONS (1)
  - Pneumonia [Unknown]
